FAERS Safety Report 7323963-3 (Version None)
Quarter: 2011Q1

REPORT INFORMATION
  Report Type: 
  Country: None (occurrence: None)
  Receive Date: 20110301
  Receipt Date: 20110223
  Transmission Date: 20110831
  Serious: Yes (Other)
  Sender: FDA-Public Use
  Company Number: B0702389A

PATIENT
  Age: 76 Year
  Sex: Male

DRUGS (3)
  1. PAXIL [Suspect]
     Dosage: 20MG PER DAY
     Route: 048
  2. HIRNAMIN [Concomitant]
     Route: 065
  3. NELBON [Concomitant]
     Route: 048

REACTIONS (2)
  - DEMENTIA [None]
  - RESTLESSNESS [None]
